FAERS Safety Report 18940641 (Version 1)
Quarter: 2021Q1

REPORT INFORMATION
  Report Type: Report from Study
  Country: US (occurrence: US)
  Receive Date: 20210225
  Receipt Date: 20210225
  Transmission Date: 20210420
  Serious: Yes (Life-Threatening, Hospitalization, Other)
  Sender: FDA-Public Use
  Company Number: US-SHIRE-US201903784

PATIENT
  Age: 55 Year
  Sex: Female
  Weight: 100.68 kg

DRUGS (4)
  1. HUMAN IMMUNOGLOBULIN; HYALURONIDASE [Suspect]
     Active Substance: HUMAN IMMUNOGLOBULIN G\HYALURONIDASE RECOMBINANT HUMAN
     Dosage: 200?300 MILLILITER, 10?15 (RHUPH20)
     Route: 058
     Dates: start: 20180614, end: 20180614
  2. HUMAN IMMUNOGLOBULIN; HYALURONIDASE [Suspect]
     Active Substance: HUMAN IMMUNOGLOBULIN G\HYALURONIDASE RECOMBINANT HUMAN
     Indication: HYPOGAMMAGLOBULINAEMIA
     Dosage: 200?300 MILLILITER, 10?15 (RHUPH20)
     Route: 058
     Dates: start: 20180614, end: 20180628
  3. CINQAIR [Concomitant]
     Active Substance: RESLIZUMAB
     Indication: ASTHMA
     Dosage: UNK, MONTHLY
     Route: 042
     Dates: start: 201811
  4. HUMAN IMMUNOGLOBULIN; HYALURONIDASE [Suspect]
     Active Substance: HUMAN IMMUNOGLOBULIN G\HYALURONIDASE RECOMBINANT HUMAN
     Dosage: UNK
     Route: 058
     Dates: start: 20180628, end: 20180628

REACTIONS (1)
  - Dyspnoea [Recovered/Resolved]

NARRATIVE: CASE EVENT DATE: 20181111
